FAERS Safety Report 6237855-4 (Version None)
Quarter: 2009Q2

REPORT INFORMATION
  Report Type: 
  Country: None (occurrence: None)
  Receive Date: 20090617
  Receipt Date: 20090602
  Transmission Date: 20091009
  Serious: Yes (Other)
  Sender: FDA-Public Use
  Company Number: 2009RR-24306

PATIENT
  Age: 34 Year
  Sex: Female

DRUGS (8)
  1. CETIRIZINE [Suspect]
  2. FEXOFENADINE (FEXOFENADINE) UNKNOWN [Suspect]
     Indication: URTICARIA
     Dosage: 120 MG, QD; 60 MG,; 12 MG,
  3. OLOPATADINE (OLOPATADINE) [Suspect]
     Dosage: 10 MG, QD
  4. CHLORPHENIRAMINE MALEATE [Suspect]
  5. EBASTINE [Suspect]
  6. HYDROXYZINE [Suspect]
     Indication: URTICARIA
     Dosage: 25 MG,
  7. LORATADINE [Suspect]
     Dosage: 10 MG,
  8. BEPOTASTINE (BEPOTASTINE) [Suspect]
     Dosage: 10 MG,

REACTIONS (3)
  - ABDOMINAL PAIN [None]
  - URTICARIA [None]
  - VOMITING [None]
